FAERS Safety Report 25659970 (Version 2)
Quarter: 2025Q3

REPORT INFORMATION
  Report Type: Spontaneous
  Country: EU (occurrence: EU)
  Receive Date: 20250808
  Receipt Date: 20250821
  Transmission Date: 20251021
  Serious: Yes (Hospitalization)
  Sender: ABBVIE
  Company Number: EU-ABBVIE-6405773

PATIENT
  Age: 87 Year
  Sex: Female
  Weight: 74 kg

DRUGS (2)
  1. SILODOSIN [Suspect]
     Active Substance: SILODOSIN
     Indication: Urinary tract disorder
     Route: 048
     Dates: start: 20250606, end: 20250625
  2. VALSARTAN [Suspect]
     Active Substance: VALSARTAN
     Indication: Hypertension
     Route: 048
     Dates: start: 20250613, end: 20250625

REACTIONS (3)
  - Product prescribing error [Unknown]
  - Urticaria [Recovered/Resolved]
  - Urinary tract disorder [Unknown]

NARRATIVE: CASE EVENT DATE: 20250606
